FAERS Safety Report 25596914 (Version 3)
Quarter: 2025Q3

REPORT INFORMATION
  Report Type: Report from Study
  Country: US (occurrence: US)
  Receive Date: 20250723
  Receipt Date: 20250829
  Transmission Date: 20251020
  Serious: Yes (Other)
  Sender: MALLINCKRODT
  Company Number: US-MALLINCKRODT-MNK202504302

PATIENT
  Age: 60 Year
  Sex: Female

DRUGS (7)
  1. CORTICOTROPIN [Suspect]
     Active Substance: CORTICOTROPIN
     Indication: Scleritis
     Route: 058
     Dates: start: 20250630
  2. PREDNISONE [Concomitant]
     Active Substance: PREDNISONE
  3. PREDNISONE [Concomitant]
     Active Substance: PREDNISONE
     Dates: start: 2025, end: 2025
  4. PREDNISONE [Concomitant]
     Active Substance: PREDNISONE
     Dates: start: 2025
  5. ADALIMUMAB [Concomitant]
     Active Substance: ADALIMUMAB
  6. ADALIMUMAB [Concomitant]
     Active Substance: ADALIMUMAB
     Indication: Swelling
  7. METHOTREXATE [Concomitant]
     Active Substance: METHOTREXATE

REACTIONS (9)
  - Hypertension [Not Recovered/Not Resolved]
  - Epistaxis [Recovered/Resolved]
  - Ocular hyperaemia [Unknown]
  - Arthritis [Unknown]
  - Illness [Unknown]
  - Fear of injection [Unknown]
  - Pain [Unknown]
  - Peripheral swelling [Unknown]
  - Injection site bruising [Unknown]

NARRATIVE: CASE EVENT DATE: 20250101
